FAERS Safety Report 5681642-2 (Version None)
Quarter: 2008Q1

REPORT INFORMATION
  Report Type: 
  Country: None (occurrence: None)
  Receive Date: 20080326
  Receipt Date: 20070226
  Transmission Date: 20080703
  Serious: No
  Sender: FDA-Public Use
  Company Number: US-BAYER-US-2007-006830

PATIENT
  Age: 31 Year
  Sex: Female
  Weight: 100 kg

DRUGS (4)
  1. MIRENA [Suspect]
     Indication: CONTRACEPTION
     Route: 015
     Dates: start: 20060401
  2. ZITHROMAX [Concomitant]
     Indication: SKIN INFECTION
     Dates: start: 20070219
  3. SYNTHROID [Concomitant]
     Route: 048
     Dates: start: 20010101
  4. METHYLDOPA [Concomitant]
     Route: 048

REACTIONS (8)
  - CERVIX DISORDER [None]
  - CRYING [None]
  - DYSPAREUNIA [None]
  - IUCD COMPLICATION [None]
  - MENORRHAGIA [None]
  - METRORRHAGIA [None]
  - MOOD SWINGS [None]
  - SKIN INFECTION [None]
